FAERS Safety Report 18159825 (Version 1)
Quarter: 2020Q3

REPORT INFORMATION
  Report Type: Spontaneous
  Country: AU (occurrence: AU)
  Receive Date: 20200817
  Receipt Date: 20200817
  Transmission Date: 20201103
  Serious: Yes (Other)
  Sender: FDA-Public Use
  Company Number: AU-GLAXOSMITHKLINE-AU2020155702

PATIENT
  Age: 45 Year
  Sex: Female

DRUGS (1)
  1. NUCALA [Suspect]
     Active Substance: MEPOLIZUMAB
     Indication: PRODUCT USED FOR UNKNOWN INDICATION
     Dosage: UNK
     Dates: start: 202007

REACTIONS (18)
  - Oropharyngeal pain [Unknown]
  - Swelling of eyelid [Recovered/Resolved]
  - Influenza like illness [Unknown]
  - Hypersomnia [Unknown]
  - Fatigue [Unknown]
  - Bladder pain [Unknown]
  - Muscle spasms [Unknown]
  - Snoring [Unknown]
  - Sensation of foreign body [Unknown]
  - Oral pain [Unknown]
  - Anaphylactic reaction [Unknown]
  - Nausea [Unknown]
  - Toothache [Unknown]
  - Arthralgia [Unknown]
  - Respiration abnormal [Unknown]
  - Suffocation feeling [Unknown]
  - Skin fissures [Unknown]
  - Dyspnoea [Unknown]

NARRATIVE: CASE EVENT DATE: 202007
